FAERS Safety Report 5174233-3 (Version None)
Quarter: 2006Q4

REPORT INFORMATION
  Report Type: 
  Country: None (occurrence: None)
  Receive Date: 20061206
  Receipt Date: 20061127
  Transmission Date: 20070319
  Serious: Yes (Hospitalization)
  Sender: FDA-Public Use
  Company Number: 2006US002767

PATIENT
  Age: 61 Year
  Sex: Female
  Weight: 52.2 kg

DRUGS (1)
  1. AMEVIVE [Suspect]
     Indication: PSORIASIS
     Dosage: 15 MG, WEEKLY, IV NOS
     Route: 042
     Dates: start: 20030414

REACTIONS (1)
  - SALIVARY GLAND NEOPLASM [None]
